FAERS Safety Report 25648318 (Version 1)
Quarter: 2025Q3

REPORT INFORMATION
  Report Type: Spontaneous
  Country: US (occurrence: US)
  Receive Date: 20250806
  Receipt Date: 20250806
  Transmission Date: 20251021
  Serious: Yes (Other)
  Sender: AMGEN
  Company Number: US-AMGEN-USASP2025151561

PATIENT
  Age: 27 Year
  Sex: Male

DRUGS (1)
  1. BEVACIZUMAB [Suspect]
     Active Substance: BEVACIZUMAB
     Indication: Neurofibromatosis
     Route: 065

REACTIONS (9)
  - Heart failure with reduced ejection fraction [Unknown]
  - Ventricular fibrillation [Unknown]
  - Cardiac arrest [Unknown]
  - Arteriosclerosis coronary artery [Unknown]
  - Coronary artery occlusion [Unknown]
  - Acute myocardial infarction [Unknown]
  - Endothelial dysfunction [Unknown]
  - Hyperlipidaemia [Unknown]
  - Off label use [Unknown]
